FAERS Safety Report 6849506-6 (Version None)
Quarter: 2010Q3

REPORT INFORMATION
  Report Type: 
  Country: None (occurrence: None)
  Receive Date: 20100716
  Receipt Date: 20071005
  Transmission Date: 20110219
  Serious: No
  Sender: FDA-Public Use
  Company Number: US-PFIZER INC-2007083191

PATIENT
  Sex: Female
  Weight: 56.363 kg

DRUGS (9)
  1. CHANTIX [Suspect]
     Indication: SMOKING CESSATION THERAPY
     Dates: start: 20070928
  2. LIPITOR [Concomitant]
  3. ANTIOXIDANTS [Concomitant]
  4. FOLIC ACID [Concomitant]
  5. VITACAL [Concomitant]
  6. ZINC [Concomitant]
  7. LORAZEPAM [Concomitant]
  8. DALMANE [Concomitant]
  9. WELLBUTRIN [Concomitant]

REACTIONS (3)
  - ANXIETY [None]
  - NERVOUSNESS [None]
  - STRESS [None]
